FAERS Safety Report 19991642 (Version 1)
Quarter: 2021Q4

REPORT INFORMATION
  Report Type: Spontaneous
  Country: US (occurrence: US)
  Receive Date: 20211025
  Receipt Date: 20211025
  Transmission Date: 20220303
  Serious: Yes (Hospitalization)
  Sender: FDA-Public Use
  Company Number: US-BAYER-2021A235934

PATIENT
  Age: 33 Year
  Sex: Female

DRUGS (1)
  1. GADAVIST [Suspect]
     Active Substance: GADOBUTROL
     Indication: Magnetic resonance imaging head
     Dosage: UNK UNK, ONCE
     Route: 042
     Dates: start: 20211015, end: 20211015

REACTIONS (3)
  - Cough [None]
  - Dyspnoea [None]
  - Headache [None]

NARRATIVE: CASE EVENT DATE: 20211015
